FAERS Safety Report 11628901 (Version 1)
Quarter: 2015Q4

REPORT INFORMATION
  Report Type: Report from Study
  Country: BR (occurrence: BR)
  Receive Date: 20151014
  Receipt Date: 20151014
  Transmission Date: 20160304
  Serious: Yes (Hospitalization, Other)
  Sender: FDA-Public Use
  Company Number: PHHY2015BR122227

PATIENT
  Sex: Female

DRUGS (2)
  1. FERRIPROX [Suspect]
     Active Substance: DEFERIPRONE
     Indication: PRODUCT USED FOR UNKNOWN INDICATION
     Route: 065
  2. DESFERAL [Suspect]
     Active Substance: DEFEROXAMINE MESYLATE
     Indication: THALASSAEMIA BETA
     Route: 065

REACTIONS (15)
  - Wound [Unknown]
  - Malaise [Unknown]
  - Depressed level of consciousness [Unknown]
  - Pathological fracture [Unknown]
  - Secretion discharge [Unknown]
  - Onychoclasis [Unknown]
  - Ankle fracture [Unknown]
  - Bone disorder [Unknown]
  - Pain [Unknown]
  - Injection site abscess [Unknown]
  - Hand fracture [Unknown]
  - Infection [Unknown]
  - Sepsis [Unknown]
  - Dyspnoea [Unknown]
  - Serum ferritin increased [Unknown]
